FAERS Safety Report 5090174-4 (Version None)
Quarter: 2006Q3

REPORT INFORMATION
  Report Type: 
  Country: None (occurrence: None)
  Receive Date: 20060828
  Receipt Date: 20060811
  Transmission Date: 20061208
  Serious: Yes (Other)
  Sender: FDA-Public Use
  Company Number: 2006AP03775

PATIENT
  Age: 20820 Day
  Sex: Male

DRUGS (7)
  1. SEROQUEL [Suspect]
     Indication: SCHIZOPHRENIA
     Route: 048
     Dates: start: 20060713, end: 20060719
  2. SEROQUEL [Suspect]
     Route: 048
     Dates: start: 20060720, end: 20060721
  3. PA [Suspect]
     Indication: UPPER RESPIRATORY TRACT INFLAMMATION
     Route: 048
     Dates: start: 20060720, end: 20060720
  4. CERCINE [Concomitant]
     Indication: EPILEPSY
     Route: 048
     Dates: start: 20060720
  5. HYDANTOL F [Concomitant]
     Indication: EPILEPSY
     Route: 048
     Dates: start: 20060720
  6. RISPERIDONE [Concomitant]
     Route: 048
     Dates: end: 20060602
  7. NEUROVITAN [Concomitant]
     Indication: EPILEPSY
     Route: 048
     Dates: start: 20060720

REACTIONS (6)
  - ALANINE AMINOTRANSFERASE INCREASED [None]
  - ASPARTATE AMINOTRANSFERASE INCREASED [None]
  - BLOOD CREATINE PHOSPHOKINASE INCREASED [None]
  - HYPOTHERMIA [None]
  - LIVER DISORDER [None]
  - NEUROLEPTIC MALIGNANT SYNDROME [None]
